FAERS Safety Report 7024799-3 (Version None)
Quarter: 2010Q4

REPORT INFORMATION
  Report Type: 
  Country: None (occurrence: None)
  Receive Date: 20101001
  Receipt Date: 20100827
  Transmission Date: 20110411
  Serious: No
  Sender: FDA-Public Use
  Company Number: US-BAYER-201032035NA

PATIENT
  Age: 20 Year
  Sex: Female
  Weight: 91 kg

DRUGS (1)
  1. MAGNEVIST [Suspect]
     Indication: VENOGRAM
     Dosage: TOTAL DAILY DOSE: 20 ML  UNIT DOSE: 20 ML
     Route: 042
     Dates: start: 20100825, end: 20100825

REACTIONS (2)
  - PRURITUS [None]
  - RASH MACULAR [None]
